FAERS Safety Report 9612001 (Version 2)
Quarter: 2013Q4

REPORT INFORMATION
  Report Type: Spontaneous
  Country: US (occurrence: US)
  Receive Date: 20131010
  Receipt Date: 20131016
  Transmission Date: 20140711
  Serious: Yes (Life-Threatening, Hospitalization, Disabling, Other)
  Sender: FDA-Public Use
  Company Number: US-009507513-1310USA003535

PATIENT
  Sex: Male

DRUGS (5)
  1. VICTRELIS [Suspect]
     Indication: HEPATITIS C
     Dosage: UNK
     Route: 048
     Dates: start: 20130929, end: 201309
  2. REBETOL [Suspect]
     Dosage: UNK
     Route: 048
     Dates: start: 20130830, end: 2013
  3. PEGASYS [Suspect]
     Dosage: UNK
     Dates: start: 20130830, end: 2013
  4. PRINIVIL [Concomitant]
     Route: 048
  5. LEVITRA [Concomitant]

REACTIONS (8)
  - Renal disorder [Unknown]
  - Transfusion [Unknown]
  - Red blood cell count decreased [Recovered/Resolved]
  - White blood cell count decreased [Recovered/Resolved]
  - Platelet count decreased [Recovered/Resolved]
  - Liver disorder [Unknown]
  - Fatigue [Unknown]
  - Nausea [Unknown]
